FAERS Safety Report 21062992 (Version 1)
Quarter: 2022Q3

REPORT INFORMATION
  Report Type: Spontaneous
  Country: AT (occurrence: AT)
  Receive Date: 20220711
  Receipt Date: 20220711
  Transmission Date: 20221027
  Serious: Yes (Other)
  Sender: FDA-Public Use
  Company Number: AT-AMGEN-AUTSP2022115290

PATIENT
  Age: 70 Year
  Sex: Female

DRUGS (1)
  1. VECTIBIX [Suspect]
     Active Substance: PANITUMUMAB
     Indication: Colorectal cancer metastatic
     Dosage: UNK, 5TH THERAPY LINE,  1+ 15 Q29
     Route: 065
     Dates: start: 202012

REACTIONS (1)
  - Colorectal cancer metastatic [Unknown]

NARRATIVE: CASE EVENT DATE: 20210301
